FAERS Safety Report 24604224 (Version 1)
Quarter: 2024Q4

REPORT INFORMATION
  Report Type: Spontaneous
  Country: US (occurrence: US)
  Receive Date: 20241111
  Receipt Date: 20241111
  Transmission Date: 20250115
  Serious: No
  Sender: ROCHE
  Company Number: US-ROCHE-10000124161

PATIENT

DRUGS (1)
  1. KADCYLA [Suspect]
     Active Substance: ADO-TRASTUZUMAB EMTANSINE
     Indication: Triple positive breast cancer
     Route: 065

REACTIONS (3)
  - Fatigue [Unknown]
  - Onychoclasis [Unknown]
  - Hair growth abnormal [Unknown]
